FAERS Safety Report 6424021-2 (Version None)
Quarter: 2009Q4

REPORT INFORMATION
  Report Type: 
  Country: None (occurrence: None)
  Receive Date: 20091030
  Receipt Date: 20091030
  Transmission Date: 20100525
  Serious: Yes (Other)
  Sender: FDA-Public Use
  Company Number: None

PATIENT
  Age: 59 Year
  Weight: 57.6068 kg

DRUGS (1)
  1. VITAMIN D [Suspect]
     Indication: VITAMIN D DEFICIENCY
     Dosage: 50000 1 CAPSULE EVERY WE PO ONCE PER WEEK
     Route: 048
     Dates: start: 20091001, end: 20091022

REACTIONS (5)
  - BLISTER [None]
  - EYELID OEDEMA [None]
  - LIP SWELLING [None]
  - PRURITUS GENERALISED [None]
  - SKIN EXFOLIATION [None]
